FAERS Safety Report 14251720 (Version 4)
Quarter: 2018Q4

REPORT INFORMATION
  Report Type: Spontaneous
  Country: FR (occurrence: FR)
  Receive Date: 20171205
  Receipt Date: 20181205
  Transmission Date: 20190204
  Serious: Yes (Death, Hospitalization, Other)
  Sender: FDA-Public Use
  Company Number: FR-009507513-1711FRA011605

PATIENT
  Age: 47 Year
  Sex: Male

DRUGS (9)
  1. PROPRANOLOL HYDROCHLORIDE. [Concomitant]
     Active Substance: PROPRANOLOL HYDROCHLORIDE
     Indication: HYPERTENSION
     Dosage: 160 MG, QD
     Dates: start: 20161212, end: 20170807
  2. LASILIX [Concomitant]
     Active Substance: FUROSEMIDE
     Indication: DIURETIC THERAPY
     Dosage: 40 MG, QD
     Dates: start: 20161212, end: 20170807
  3. HARVONI [Suspect]
     Active Substance: LEDIPASVIR\SOFOSBUVIR
     Indication: HEPATITIS C
     Dosage: STRENGTH: 400/900 MG, 1 DF, QD, FOR DURATION OF 12 WEEKS
     Dates: start: 20161013, end: 20161121
  4. METHADONE HYDROCHLORIDE. [Concomitant]
     Active Substance: METHADONE HYDROCHLORIDE
     Indication: PRODUCT SUBSTITUTION
     Dosage: 40 MG, QD
     Dates: start: 2004, end: 20170807
  5. ALDACTONE (CANRENOATE POTASSIUM) [Concomitant]
     Active Substance: CANRENOATE POTASSIUM
     Indication: DIURETIC THERAPY
     Dosage: 50 MG, QD
     Dates: start: 20161212, end: 20170807
  6. ZANIDIP [Concomitant]
     Active Substance: LERCANIDIPINE HYDROCHLORIDE
     Indication: HYPERTENSION
     Dosage: 20 MG, QD
     Dates: start: 2016, end: 20170807
  7. INEXIUM (ESOMEPRAZOLE MAGNESIUM) [Concomitant]
     Active Substance: ESOMEPRAZOLE MAGNESIUM
     Indication: GASTROOESOPHAGEAL REFLUX DISEASE
     Dosage: 40 MG, QD
     Dates: start: 20161212, end: 20170807
  8. REBETOL [Suspect]
     Active Substance: RIBAVIRIN
     Indication: HEPATITIS C
     Dosage: 1200 MG PER DAY (QD), FOR DURATION OF 12 WEEKS
     Route: 048
     Dates: start: 20161013, end: 20161121
  9. NORFLOXACIN [Concomitant]
     Active Substance: NORFLOXACIN
     Indication: ANTIBIOTIC THERAPY
     Dosage: 400 MG, QD
     Dates: start: 20161212, end: 20170807

REACTIONS (2)
  - Hepatocellular carcinoma [Fatal]
  - Oesophageal varices haemorrhage [Recovering/Resolving]

NARRATIVE: CASE EVENT DATE: 201610
